FAERS Safety Report 15349453 (Version 11)
Quarter: 2019Q4

REPORT INFORMATION
  Report Type: Report from Study
  Country: US (occurrence: US)
  Receive Date: 20180904
  Receipt Date: 20191210
  Transmission Date: 20200122
  Serious: Yes (Death, Hospitalization, Other)
  Sender: FDA-Public Use
  Company Number: US-ACTELION-A-NJ2018-178110

PATIENT
  Age: 68 Year
  Sex: Female
  Weight: 124.72 kg

DRUGS (19)
  1. ADEMPAS [Concomitant]
     Active Substance: RIOCIGUAT
     Dosage: UNK
     Dates: start: 20180811
  2. OPSUMIT [Suspect]
     Active Substance: MACITENTAN
     Indication: PULMONARY ARTERIAL HYPERTENSION
     Dosage: 10 MG, QD
     Route: 048
     Dates: start: 20140815
  3. DAILY VITAMINS [Concomitant]
     Active Substance: VITAMINS
     Dosage: UNK
     Dates: start: 20180811
  4. CALCIUM CARBONATE. [Concomitant]
     Active Substance: CALCIUM CARBONATE
     Dosage: UNK
     Dates: start: 20180811
  5. DIGOXIN. [Concomitant]
     Active Substance: DIGOXIN
     Dosage: UNK
     Dates: start: 20180811
  6. VITAMIN D [Concomitant]
     Active Substance: VITAMIN D NOS
     Dosage: UNK
     Dates: start: 20180811
  7. ALBUTEROL. [Concomitant]
     Active Substance: ALBUTEROL
     Dosage: UNK
     Dates: start: 20180811
  8. FUROSEMIDE. [Concomitant]
     Active Substance: FUROSEMIDE
     Dosage: UNK
     Dates: start: 20180811
  9. HYDROXYCHLOROQUINE [Concomitant]
     Active Substance: HYDROXYCHLOROQUINE
     Dosage: UNK
     Dates: start: 20180811
  10. LISINOPRIL. [Concomitant]
     Active Substance: LISINOPRIL
     Dosage: UNK
     Dates: start: 20180811
  11. ELIQUIS [Concomitant]
     Active Substance: APIXABAN
  12. DILTIAZEM. [Concomitant]
     Active Substance: DILTIAZEM
     Dosage: UNK
     Dates: start: 20180811
  13. LEVOTHYROXINE. [Concomitant]
     Active Substance: LEVOTHYROXINE
     Dosage: UNK
     Dates: start: 20180811
  14. SERTRALINE [Concomitant]
     Active Substance: SERTRALINE HYDROCHLORIDE
     Dosage: UNK
     Dates: start: 20180811
  15. IRON [Suspect]
     Active Substance: IRON
     Indication: PRODUCT USED FOR UNKNOWN INDICATION
     Dosage: UNK
     Route: 042
     Dates: start: 20181207
  16. LEVOCETIRIZINE [Concomitant]
     Active Substance: LEVOCETIRIZINE
     Dosage: UNK
     Dates: start: 20180811
  17. TOLTERODINE [Concomitant]
     Active Substance: TOLTERODINE
     Dosage: UNK
     Dates: start: 20180811
  18. ASPIRIN. [Concomitant]
     Active Substance: ASPIRIN
  19. DOXYCYCLINE. [Concomitant]
     Active Substance: DOXYCYCLINE
     Dosage: 100 MG, UNK

REACTIONS (25)
  - Oedema peripheral [Unknown]
  - Hypersensitivity [Unknown]
  - Hospitalisation [Unknown]
  - Hepatic cirrhosis [Not Recovered/Not Resolved]
  - Haematocrit decreased [Unknown]
  - Haematochezia [Recovered/Resolved]
  - Fall [Unknown]
  - Generalised oedema [Fatal]
  - Gastrointestinal haemorrhage [Unknown]
  - Dyspnoea exertional [Unknown]
  - Weight increased [Unknown]
  - Bilirubin conjugated increased [Unknown]
  - Dyspnoea [Unknown]
  - Internal haemorrhage [Not Recovered/Not Resolved]
  - Melaena [Unknown]
  - Mineral supplementation [Unknown]
  - Blood alkaline phosphatase increased [Unknown]
  - Asthenia [Fatal]
  - Oxygen consumption increased [Unknown]
  - Pulmonary hypertension [Not Recovered/Not Resolved]
  - Fluid retention [Unknown]
  - Cardiac failure congestive [Fatal]
  - Anaemia [Unknown]
  - Packed red blood cell transfusion [Unknown]
  - Haemoglobin decreased [Recovered/Resolved]

NARRATIVE: CASE EVENT DATE: 201510
